FAERS Safety Report 18218967 (Version 1)
Quarter: 2020Q3

REPORT INFORMATION
  Report Type: Spontaneous
  Country: US (occurrence: US)
  Receive Date: 20200901
  Receipt Date: 20200901
  Transmission Date: 20201103
  Serious: Yes (Hospitalization, Other)
  Sender: FDA-Public Use
  Company Number: US-BEXIMCO-2020BEX00038

PATIENT
  Sex: Male
  Weight: 136.05 kg

DRUGS (7)
  1. METFORMIN HYDROCHLORIDE. [Suspect]
     Active Substance: METFORMIN HYDROCHLORIDE
     Indication: GLUCOSE TOLERANCE IMPAIRED
     Dosage: 2 TABLETS, 1X/DAY IN THE MORNING
     Route: 048
     Dates: start: 2010
  2. LISINOPRIL. [Concomitant]
     Active Substance: LISINOPRIL
  3. METFORMIN ER (TIME CAP LABS) [Suspect]
     Active Substance: METFORMIN HYDROCHLORIDE
     Indication: TYPE 2 DIABETES MELLITUS
  4. UNSPECIFIED ^BUNCH OF MEDS FOR BLOOD PRESSURE AND STUFF^ [Concomitant]
  5. METFORMIN HYDROCHLORIDE. [Suspect]
     Active Substance: METFORMIN HYDROCHLORIDE
     Indication: TYPE 2 DIABETES MELLITUS
  6. METFORMIN ER (TIME CAP LABS) [Suspect]
     Active Substance: METFORMIN HYDROCHLORIDE
     Indication: GLUCOSE TOLERANCE IMPAIRED
     Dosage: 1000 MG, 1X/DAY IN THE MORNING
     Route: 048
  7. GLYBURIDE. [Concomitant]
     Active Substance: GLYBURIDE

REACTIONS (4)
  - Bladder cancer [Recovered/Resolved]
  - Type 2 diabetes mellitus [Not Recovered/Not Resolved]
  - Drug ineffective for unapproved indication [Recovered/Resolved]
  - Bladder cancer recurrent [Recovered/Resolved]
